FAERS Safety Report 17617727 (Version 2)
Quarter: 2020Q2

REPORT INFORMATION
  Report Type: Spontaneous
  Country: US (occurrence: US)
  Receive Date: 20200402
  Receipt Date: 20200416
  Transmission Date: 20200713
  Serious: Yes (Death, Life-Threatening, Other)
  Sender: FDA-Public Use
  Company Number: NVSC2020US089626

PATIENT
  Sex: Female

DRUGS (1)
  1. VOTRIENT [Suspect]
     Active Substance: PAZOPANIB HYDROCHLORIDE
     Indication: PRODUCT USED FOR UNKNOWN INDICATION
     Dosage: UNK
     Route: 065

REACTIONS (8)
  - Sepsis [Fatal]
  - Dysstasia [Unknown]
  - Urinary tract infection [Unknown]
  - Blood pressure abnormal [Unknown]
  - Pain [Unknown]
  - Adrenal suppression [Unknown]
  - Chills [Unknown]
  - Pyrexia [Unknown]
